FAERS Safety Report 11827168 (Version 10)
Quarter: 2017Q2

REPORT INFORMATION
  Report Type: Report from Study
  Country: US (occurrence: US)
  Receive Date: 20151211
  Receipt Date: 20170427
  Transmission Date: 20170829
  Serious: Yes (Hospitalization, Other)
  Sender: FDA-Public Use
  Company Number: US-SA-2015SA007771

PATIENT
  Age: 62 Year
  Sex: Female

DRUGS (6)
  1. COPAXONE [Concomitant]
     Active Substance: GLATIRAMER ACETATE
     Indication: MULTIPLE SCLEROSIS
     Dates: start: 20100101, end: 20150606
  2. ACYCLOVIR. [Concomitant]
     Active Substance: ACYCLOVIR
     Indication: PREMEDICATION
  3. ZYRTEC [Concomitant]
     Active Substance: CETIRIZINE HYDROCHLORIDE
  4. LEMTRADA [Suspect]
     Active Substance: ALEMTUZUMAB
     Indication: MULTIPLE SCLEROSIS
     Route: 041
     Dates: start: 20170403, end: 20170405
  5. LEMTRADA [Suspect]
     Active Substance: ALEMTUZUMAB
     Indication: MULTIPLE SCLEROSIS
     Route: 041
     Dates: start: 20150608, end: 20150612
  6. ZYPREXA [Concomitant]
     Active Substance: OLANZAPINE

REACTIONS (22)
  - Speech disorder [Unknown]
  - Herpes zoster [Recovered/Resolved]
  - Feeling abnormal [Recovering/Resolving]
  - Balance disorder [Not Recovered/Not Resolved]
  - Muscular weakness [Recovering/Resolving]
  - Ligament rupture [Not Recovered/Not Resolved]
  - Contusion [Unknown]
  - Gait disturbance [Recovered/Resolved]
  - Disturbance in attention [Recovering/Resolving]
  - Mental impairment [Recovered/Resolved]
  - Ovarian cancer [Unknown]
  - Memory impairment [Not Recovered/Not Resolved]
  - Vision blurred [Recovering/Resolving]
  - Platelet count decreased [Unknown]
  - Asthenia [Recovering/Resolving]
  - Speech disorder [Recovered/Resolved]
  - Multiple sclerosis relapse [Unknown]
  - Nephrolithiasis [Unknown]
  - Urinary tract infection [Unknown]
  - Dysphonia [Not Recovered/Not Resolved]
  - Vocal cord disorder [Unknown]
  - Fall [Unknown]

NARRATIVE: CASE EVENT DATE: 2015
